FAERS Safety Report 14450518 (Version 1)
Quarter: 2018Q1

REPORT INFORMATION
  Report Type: Spontaneous
  Country: US (occurrence: US)
  Receive Date: 20180129
  Receipt Date: 20180129
  Transmission Date: 20180509
  Serious: No
  Sender: FDA-Public Use
  Company Number: US-ASTRAZENECA-2018SE10483

PATIENT
  Age: 20931 Day
  Sex: Male
  Weight: 70.8 kg

DRUGS (1)
  1. SYMBICORT [Suspect]
     Active Substance: BUDESONIDE\FORMOTEROL FUMARATE DIHYDRATE
     Indication: BRONCHOSPASM
     Dosage: 2 PUFFS TWO TIMES A DAY
     Route: 055
     Dates: start: 20180120, end: 20180121

REACTIONS (15)
  - Dyspnoea [Unknown]
  - Intentional product misuse [Unknown]
  - Back pain [Unknown]
  - Diarrhoea [Unknown]
  - Pelvic pain [Unknown]
  - Pneumonia [Unknown]
  - Muscle spasms [Unknown]
  - Condition aggravated [Unknown]
  - Candida infection [Unknown]
  - Vomiting [Unknown]
  - Headache [Unknown]
  - Gastrointestinal motility disorder [Unknown]
  - Secretion discharge [Unknown]
  - Feeling abnormal [Unknown]
  - Cough [Unknown]

NARRATIVE: CASE EVENT DATE: 20180121
